FAERS Safety Report 11457338 (Version 3)
Quarter: 2016Q1

REPORT INFORMATION
  Report Type: Spontaneous
  Country: US (occurrence: US)
  Receive Date: 20150904
  Receipt Date: 20160205
  Transmission Date: 20160525
  Serious: Yes (Other)
  Sender: FDA-Public Use
  Company Number: US-AUROBINDO-AUR-APL-2015-07675

PATIENT
  Age: 1 Day
  Sex: Female
  Weight: 2.25 kg

DRUGS (12)
  1. GABAPENTIN 600MG [Suspect]
     Active Substance: GABAPENTIN
     Dosage: 2.5 MG/KG, EVERY 12 HOURS
     Route: 064
  2. BACLOFEN. [Concomitant]
     Active Substance: BACLOFEN
     Route: 064
  3. AMPICILLIN [Concomitant]
     Active Substance: AMPICILLIN
     Indication: PROPHYLAXIS
     Route: 042
  4. BACLOFEN. [Concomitant]
     Active Substance: BACLOFEN
     Indication: PRODUCT USED FOR UNKNOWN INDICATION
     Dosage: 30 MG, FOUR TIMES/DAY
     Route: 064
  5. GENTAMICIN. [Concomitant]
     Active Substance: GENTAMICIN
     Indication: PROPHYLAXIS
     Route: 042
  6. GABAPENTIN 600MG [Suspect]
     Active Substance: GABAPENTIN
     Indication: PRODUCT USED FOR UNKNOWN INDICATION
     Dosage: 600 MG, 3 TIMES A DAY
     Route: 064
  7. OXYBUTYNIN [Concomitant]
     Active Substance: OXYBUTYNIN
     Indication: PRODUCT USED FOR UNKNOWN INDICATION
     Dosage: 10 MG, DAILY
     Route: 064
  8. GABAPENTIN 600MG [Suspect]
     Active Substance: GABAPENTIN
     Dosage: 2.5 MG, TWO TIMES A DAY
     Route: 064
  9. GABAPENTIN 600MG [Suspect]
     Active Substance: GABAPENTIN
     Dosage: 7.5 MG, TWO TIMES A DAY
     Route: 064
  10. GABAPENTIN 600MG [Suspect]
     Active Substance: GABAPENTIN
     Dosage: 5 MG, TWO TIMES A DAY
     Route: 064
  11. OXYBUTYNIN [Concomitant]
     Active Substance: OXYBUTYNIN
     Route: 064
  12. GABAPENTIN 600MG [Suspect]
     Active Substance: GABAPENTIN
     Dosage: 5 MG/KG, TWO TIMES A DAY
     Route: 064

REACTIONS (11)
  - Selective eating disorder [Recovered/Resolved]
  - Irritability [Recovered/Resolved]
  - Feeling jittery [Recovered/Resolved]
  - Hypoglycaemia [Recovered/Resolved]
  - Foetal exposure during pregnancy [Recovered/Resolved]
  - Drug withdrawal syndrome neonatal [Recovered/Resolved]
  - Apnoea [Recovered/Resolved]
  - Neonatal respiratory distress syndrome [Recovered/Resolved]
  - Hypotonia neonatal [Recovered/Resolved]
  - Diarrhoea [Recovered/Resolved]
  - Sneezing [Recovered/Resolved]
